FAERS Safety Report 7416054-4 (Version None)
Quarter: 2011Q2

REPORT INFORMATION
  Report Type: 
  Country: None (occurrence: None)
  Receive Date: 20110414
  Receipt Date: 20110408
  Transmission Date: 20111010
  Serious: Yes (Other)
  Sender: FDA-Public Use
  Company Number: GB-US-EMD SERONO, INC.-7020173

PATIENT
  Sex: Female

DRUGS (2)
  1. REBIF [Suspect]
     Indication: PRODUCT USED FOR UNKNOWN INDICATION
     Dates: start: 20070101
  2. REBIF [Suspect]
     Dates: start: 20100401

REACTIONS (4)
  - INJECTION SITE INFECTION [None]
  - DIABETES MELLITUS [None]
  - INJECTION SITE PRURITUS [None]
  - INJECTION SITE MASS [None]
